FAERS Safety Report 10518588 (Version 2)
Quarter: 2014Q4

REPORT INFORMATION
  Report Type: Spontaneous
  Country: US (occurrence: US)
  Receive Date: 20141015
  Receipt Date: 20141015
  Transmission Date: 20150528
  Serious: Yes (Other)
  Sender: FDA-Public Use
  Company Number: US-LEO PHARMA-223046

PATIENT
  Age: 44 Year
  Sex: Male

DRUGS (1)
  1. PICATO [Suspect]
     Active Substance: INGENOL MEBUTATE
     Indication: ACTINIC KERATOSIS
     Route: 061
     Dates: start: 20130803, end: 20130805

REACTIONS (5)
  - Eye irritation [Recovered/Resolved]
  - Eye pain [Recovered/Resolved]
  - Accidental exposure to product [Unknown]
  - Eye discharge [Recovered/Resolved]
  - Drug administered at inappropriate site [Unknown]

NARRATIVE: CASE EVENT DATE: 20130805
